FAERS Safety Report 7496613-3 (Version None)
Quarter: 2011Q2

REPORT INFORMATION
  Report Type: 
  Country: None (occurrence: None)
  Receive Date: 20110520
  Receipt Date: 20110520
  Transmission Date: 20111010
  Serious: No
  Sender: FDA-Public Use
  Company Number: None

PATIENT
  Age: 55 Year
  Sex: Female
  Weight: 53.0709 kg

DRUGS (1)
  1. CYMBALTA [Suspect]
     Indication: MAJOR DEPRESSION
     Dosage: 30MG DAILEY PO
     Route: 048
     Dates: start: 20110226, end: 20110515

REACTIONS (9)
  - TINNITUS [None]
  - VOMITING [None]
  - PARAESTHESIA [None]
  - DIARRHOEA [None]
  - FATIGUE [None]
  - DRUG WITHDRAWAL SYNDROME [None]
  - ABNORMAL DREAMS [None]
  - MEMORY IMPAIRMENT [None]
  - INSOMNIA [None]
